FAERS Safety Report 9305624 (Version 2)
Quarter: 2013Q2

REPORT INFORMATION
  Report Type: Spontaneous
  Country: US (occurrence: US)
  Receive Date: 20130523
  Receipt Date: 20130613
  Transmission Date: 20140414
  Serious: Yes (Hospitalization)
  Sender: FDA-Public Use
  Company Number: US-JNJFOC-20130506249

PATIENT
  Age: 44 Year
  Sex: Male
  Weight: 88.45 kg

DRUGS (2)
  1. INVEGA [Suspect]
     Indication: SCHIZOPHRENIA
     Route: 048
     Dates: start: 200707, end: 201305
  2. INVEGA [Suspect]
     Indication: SCHIZOPHRENIA
     Route: 048
     Dates: start: 201305

REACTIONS (8)
  - Mental disorder [Not Recovered/Not Resolved]
  - Depression [Unknown]
  - Medication residue present [Unknown]
  - Nasopharyngitis [Unknown]
  - Viral infection [Unknown]
  - Hypersomnia [Unknown]
  - Abnormal behaviour [Unknown]
  - Restlessness [Unknown]
